FAERS Safety Report 18807164 (Version 1)
Quarter: 2021Q1

REPORT INFORMATION
  Report Type: Spontaneous
  Country: US (occurrence: US)
  Receive Date: 20210128
  Receipt Date: 20210128
  Transmission Date: 20210419
  Serious: Yes (Hospitalization, Other)
  Sender: FDA-Public Use
  Company Number: None

PATIENT
  Age: 60 Year
  Sex: Female

DRUGS (1)
  1. ATORVASTATIN 40MG?80MG [Suspect]
     Active Substance: ATORVASTATIN
     Indication: ACUTE MYOCARDIAL INFARCTION
     Dosage: OTHER DOSE:40?80MG;  DAILY HS  ORAL?
     Route: 048
     Dates: start: 20201018

REACTIONS (7)
  - Acute kidney injury [None]
  - Dialysis [None]
  - Myalgia [None]
  - Rhabdomyolysis [None]
  - Blood alkaline phosphatase increased [None]
  - Aspartate aminotransferase increased [None]
  - Alanine aminotransferase increased [None]

NARRATIVE: CASE EVENT DATE: 20201216
